FAERS Safety Report 15301418 (Version 1)
Quarter: 2018Q3

REPORT INFORMATION
  Report Type: Spontaneous
  Country: US (occurrence: US)
  Receive Date: 20180809
  Receipt Date: 20180809
  Transmission Date: 20181010
  Serious: Yes (Disabling)
  Sender: FDA-Public Use
  Company Number: None

PATIENT
  Age: 39 Year
  Sex: Female
  Weight: 128.25 kg

DRUGS (8)
  1. MULTIVITAMIN [Concomitant]
     Active Substance: VITAMINS
  2. IRON [Concomitant]
     Active Substance: IRON
  3. VITAMIN D3 [Concomitant]
     Active Substance: CHOLECALCIFEROL
  4. AMITRIPTYLINE [Concomitant]
     Active Substance: AMITRIPTYLINE
  5. CYMBALTA [Concomitant]
     Active Substance: DULOXETINE HYDROCHLORIDE
  6. VITAMIN B12 [Concomitant]
     Active Substance: CYANOCOBALAMIN
  7. MAGNESIUM [Concomitant]
     Active Substance: MAGNESIUM
  8. OMEPRAZOLE DR [Suspect]
     Active Substance: OMEPRAZOLE
     Indication: GASTROOESOPHAGEAL REFLUX DISEASE
     Dosage: ?          QUANTITY:1 CAPSULE(S);?
     Route: 048
     Dates: start: 20180806, end: 20180807

REACTIONS (18)
  - Dry mouth [None]
  - Nausea [None]
  - Cold sweat [None]
  - Product use complaint [None]
  - Dizziness [None]
  - Vomiting [None]
  - Hypersensitivity [None]
  - Feeling abnormal [None]
  - Drug ineffective [None]
  - Confusional state [None]
  - Headache [None]
  - Abdominal distension [None]
  - Liver function test abnormal [None]
  - Renal function test abnormal [None]
  - Muscle spasms [None]
  - Hypotension [None]
  - Speech disorder [None]
  - Respiratory tract congestion [None]

NARRATIVE: CASE EVENT DATE: 20180808
